FAERS Safety Report 10448943 (Version 1)
Quarter: 2014Q3

REPORT INFORMATION
  Report Type: Spontaneous
  Country: US (occurrence: US)
  Receive Date: 20140912
  Receipt Date: 20140912
  Transmission Date: 20150326
  Serious: No
  Sender: FDA-Public Use
  Company Number: US-AMGEN-USASP2014068515

PATIENT
  Age: 56 Year
  Sex: Female
  Weight: 108.39 kg

DRUGS (12)
  1. LOSARTAN POTASICO [Concomitant]
     Active Substance: LOSARTAN
     Dosage: 50 MG, UNK
  2. ENBREL [Suspect]
     Active Substance: ETANERCEPT
     Indication: PSORIATIC ARTHROPATHY
     Dosage: 50 MG, 2 TIMES/WK
     Route: 058
  3. OXYBUTYNIN [Concomitant]
     Active Substance: OXYBUTYNIN
     Dosage: 10 MG, UNK
  4. METHOTREXATE [Concomitant]
     Active Substance: METHOTREXATE
     Dosage: 50 MG, UNK
  5. PROTONIX [Concomitant]
     Active Substance: PANTOPRAZOLE SODIUM
     Dosage: 20 MG, UNK
  6. PREDNISONE. [Concomitant]
     Active Substance: PREDNISONE
     Dosage: 1 MG, UNK
  7. DOVONEX [Concomitant]
     Active Substance: CALCIPOTRIENE
     Dosage: UNK,0.005%
  8. TRAMADOL HCL [Concomitant]
     Active Substance: TRAMADOL HYDROCHLORIDE
     Dosage: 50 MG, UNK
  9. VITAMIN D                          /00107901/ [Concomitant]
     Active Substance: ERGOCALCIFEROL
     Dosage: 1000 UNIT, UNK
  10. VITAMIN B12 [Concomitant]
     Active Substance: CYANOCOBALAMIN
     Dosage: 1000 UNK, UNK
  11. EVAMIST [Concomitant]
     Active Substance: ESTRADIOL
     Dosage: 1.53 MG, UNK
  12. VIVELLE DOT [Concomitant]
     Active Substance: ESTRADIOL
     Dosage: 0.075 MG, UNK

REACTIONS (1)
  - Liver function test abnormal [Unknown]
